FAERS Safety Report 5393116-7 (Version None)
Quarter: 2007Q3

REPORT INFORMATION
  Report Type: 
  Country: None (occurrence: None)
  Receive Date: 20070719
  Receipt Date: 20070710
  Transmission Date: 20080115
  Serious: Yes (Other)
  Sender: FDA-Public Use
  Company Number: 2007326247

PATIENT

DRUGS (1)
  1. BENADRYL [Suspect]
     Indication: EUPHORIC MOOD
     Dosage: 40 PILLS ONE DAY; ORAL
     Route: 048
     Dates: start: 20070705, end: 20070706

REACTIONS (4)
  - ABNORMAL BEHAVIOUR [None]
  - CHEST DISCOMFORT [None]
  - DRUG ABUSER [None]
  - INCORRECT DOSE ADMINISTERED [None]
